FAERS Safety Report 6092699-1 (Version None)
Quarter: 2009Q1

REPORT INFORMATION
  Report Type: 
  Country: None (occurrence: None)
  Receive Date: 20090225
  Receipt Date: 20090216
  Transmission Date: 20090719
  Serious: Yes (Death, Hospitalization)
  Sender: FDA-Public Use
  Company Number: PH-BAXTER-2009BH002671

PATIENT
  Age: 69 Year
  Sex: Male

DRUGS (1)
  1. DIANEAL [Suspect]
     Indication: RENAL FAILURE CHRONIC
     Route: 033
     Dates: start: 20080502, end: 20090215

REACTIONS (3)
  - BRADYCARDIA [None]
  - CEREBROVASCULAR ACCIDENT [None]
  - DYSPNOEA [None]
